FAERS Safety Report 10337988 (Version 2)
Quarter: 2014Q3

REPORT INFORMATION
  Report Type: Report from Study
  Country: US (occurrence: None)
  Receive Date: 20140722
  Receipt Date: 20140811
  Transmission Date: 20150326
  Serious: Yes (Hospitalization)
  Sender: FDA-Public Use
  Company Number: 2014SGN00834

PATIENT
  Age: 85 Year
  Sex: Male
  Weight: 60 kg

DRUGS (12)
  1. PREGABALIN (PREGABALIN) [Concomitant]
     Active Substance: PREGABALIN
  2. SODIUM CHLORIDE (SODIUM CHLORIDE) [Concomitant]
     Active Substance: SODIUM CHLORIDE
  3. ONDANSETRON. [Concomitant]
     Active Substance: ONDANSETRON
  4. BRENTUXIMAB VEDOTIN (BRENTUXIMAB VEDOTIN) INJECTION [Suspect]
     Active Substance: BRENTUXIMAB VEDOTIN
     Indication: HODGKIN^S DISEASE
     Dosage: 1.8 MG, Q21D, INTRAVENOUS
     Route: 042
     Dates: start: 20140424, end: 20140515
  5. ASPIRIN (ACETYLSALICYLIC ACID) [Concomitant]
     Active Substance: ASPIRIN
  6. DOXORUBICIN (DOXORUBICIN) INJECTION [Suspect]
     Active Substance: DOXORUBICIN
     Indication: HODGKIN^S DISEASE
     Dosage: 43 NG, QCYCLE, INTRAVENOUS
     Route: 042
     Dates: start: 20140605, end: 20140619
  7. DACARBAZINE (DACARBAZINE) INJECTION [Suspect]
     Active Substance: DACARBAZINE
     Indication: HODGKIN^S DISEASE
     Dosage: 641 MG, Q28D, INTRAVENOUS
     Route: 042
     Dates: start: 20140605, end: 20140619
  8. CETIRIZINE [Concomitant]
     Active Substance: CETIRIZINE HYDROCHLORIDE
  9. DOCUSATE SODIUM (DOCUSATE SODIUM) [Concomitant]
     Active Substance: DOCUSATE SODIUM
  10. VINBLASTINE (VINBLASTINE SULFATE) INJECTION [Suspect]
     Active Substance: VINBLASTINE
     Indication: HODGKIN^S DISEASE
     Dosage: 10 MG, Q28D, INTRAVENOUS
     Route: 042
     Dates: start: 20140605, end: 20140619
  11. ATENOLOL (ATENOLOL) [Concomitant]
     Active Substance: ATENOLOL
  12. ENOXAPARIN (ENOXAPARIN) [Concomitant]
     Active Substance: ENOXAPARIN

REACTIONS (1)
  - Subcutaneous abscess [None]

NARRATIVE: CASE EVENT DATE: 20140703
